FAERS Safety Report 24770944 (Version 1)
Quarter: 2024Q4

REPORT INFORMATION
  Report Type: Spontaneous
  Country: US (occurrence: US)
  Receive Date: 20241224
  Receipt Date: 20241224
  Transmission Date: 20250115
  Serious: Yes (Other)
  Sender: MERCK
  Company Number: US-009507513-2412USA007584

PATIENT
  Age: 67 Year
  Sex: Female

DRUGS (1)
  1. KEYTRUDA [Suspect]
     Active Substance: PEMBROLIZUMAB
     Indication: Renal cell carcinoma
     Dosage: UNK

REACTIONS (4)
  - Immune-mediated hepatitis [Recovering/Resolving]
  - Immune-mediated pancreatitis [Recovering/Resolving]
  - Immune-mediated arthritis [Recovering/Resolving]
  - Type 1 diabetes mellitus [Recovering/Resolving]
